FAERS Safety Report 4840065-6 (Version None)
Quarter: 2005Q4

REPORT INFORMATION
  Report Type: 
  Country: None (occurrence: None)
  Receive Date: 20051129
  Receipt Date: 20050818
  Transmission Date: 20060501
  Serious: Yes (Other)
  Sender: FDA-Public Use
  Company Number: PHEH2005US09226

PATIENT
  Age: 29 Year
  Sex: Male

DRUGS (1)
  1. LAMISIL [Suspect]
     Indication: NAIL TINEA
     Dosage: 250 MG, QD
     Route: 048
     Dates: start: 20040901, end: 20041101

REACTIONS (4)
  - ECZEMA [None]
  - PARAESTHESIA [None]
  - SKIN REACTION [None]
  - URTICARIA [None]
